FAERS Safety Report 25383026 (Version 1)
Quarter: 2025Q2

REPORT INFORMATION
  Report Type: Spontaneous
  Country: US (occurrence: US)
  Receive Date: 20250602
  Receipt Date: 20250602
  Transmission Date: 20250717
  Serious: No
  Sender: ROCHE
  Company Number: US-ROCHE-10000295870

PATIENT
  Age: 61 Year
  Sex: Male
  Weight: 57.6 kg

DRUGS (1)
  1. ACTEMRA [Suspect]
     Active Substance: TOCILIZUMAB
     Indication: Rheumatoid arthritis
     Dosage: IN THE BELLY, ON THURSDAY^S
     Route: 058
     Dates: start: 202503

REACTIONS (3)
  - Contusion [Recovering/Resolving]
  - Wrong technique in product usage process [Unknown]
  - Device breakage [Unknown]

NARRATIVE: CASE EVENT DATE: 20250516
